FAERS Safety Report 20105345 (Version 3)
Quarter: 2022Q1

REPORT INFORMATION
  Report Type: Report from Study
  Country: DE (occurrence: DE)
  Receive Date: 20211124
  Receipt Date: 20220111
  Transmission Date: 20220423
  Serious: Yes (Other)
  Sender: FDA-Public Use
  Company Number: DE-ABBVIE-21K-062-4173024-00

PATIENT
  Age: 72 Year
  Sex: Male
  Weight: 84 kg

DRUGS (6)
  1. GLECAPREVIR\PIBRENTASVIR [Suspect]
     Active Substance: GLECAPREVIR\PIBRENTASVIR
     Indication: Chronic hepatitis C
     Dosage: 100 MILLIGRAMS GLECAPREVIR/40 MILLIGRAMS PIBRENTASVIR TABLETS
     Route: 048
     Dates: start: 20190918, end: 20191112
  2. HYGROTON [Concomitant]
     Active Substance: CHLORTHALIDONE
     Indication: Cardiovascular disorder
     Dosage: STARTED BEFORE MAVIRET THERAPY
  3. RAMIPRIL [Concomitant]
     Active Substance: RAMIPRIL
     Indication: Cardiovascular disorder
     Dosage: STARTED BEFORE MAVIRET THERAPY
  4. CARVEDILOL [Concomitant]
     Active Substance: CARVEDILOL
     Indication: Cardiovascular disorder
     Dosage: STARTED BEFORE MAVIRET THERAPY
  5. DIGITOXIN [Concomitant]
     Active Substance: DIGITOXIN
     Indication: Cardiovascular disorder
     Dosage: STARTED DURING MAVIRET THERAPY
  6. XARELTO [Concomitant]
     Active Substance: RIVAROXABAN
     Indication: Cardiovascular disorder
     Dosage: STARTED DURING MAVIRET THERAPY

REACTIONS (2)
  - Hepatocellular carcinoma [Not Recovered/Not Resolved]
  - Hepatectomy [Unknown]

NARRATIVE: CASE EVENT DATE: 20210730
